FAERS Safety Report 13619717 (Version 1)
Quarter: 2017Q2

REPORT INFORMATION
  Report Type: Spontaneous
  Country: US (occurrence: US)
  Receive Date: 20170606
  Receipt Date: 20170606
  Transmission Date: 20170830
  Serious: No
  Sender: FDA-Public Use
  Company Number: None

PATIENT
  Age: 65 Year
  Sex: Female

DRUGS (1)
  1. NINLARO [Suspect]
     Active Substance: IXAZOMIB
     Indication: PLASMA CELL MYELOMA IN REMISSION
     Dosage: 4MG Q WEEK/3 WKS THEN 1 WEEK OFF P.O.
     Route: 048
     Dates: start: 20170405

REACTIONS (2)
  - Therapy cessation [None]
  - Blood count abnormal [None]
